FAERS Safety Report 14679660 (Version 2)
Quarter: 2018Q2

REPORT INFORMATION
  Report Type: Report from Study
  Country: CA (occurrence: CA)
  Receive Date: 20180326
  Receipt Date: 20180423
  Transmission Date: 20180711
  Serious: Yes (Other)
  Sender: FDA-Public Use
  Company Number: CA-SA-2017SA267219

PATIENT
  Sex: Male

DRUGS (6)
  1. METHYLPREDNISOLONE. [Concomitant]
     Active Substance: METHYLPREDNISOLONE
     Indication: PREMEDICATION
     Route: 042
     Dates: start: 20171218, end: 20171222
  2. RANITIDINE. [Concomitant]
     Active Substance: RANITIDINE
     Indication: PREMEDICATION
     Route: 048
     Dates: start: 20171218, end: 20171222
  3. ACETAMINOPHEN. [Concomitant]
     Active Substance: ACETAMINOPHEN
     Indication: PREMEDICATION
     Route: 048
     Dates: start: 20171218
  4. LEMTRADA [Suspect]
     Active Substance: ALEMTUZUMAB
     Indication: MULTIPLE SCLEROSIS RELAPSE
     Route: 041
     Dates: start: 20171218, end: 20171222
  5. ACYCLOVIR. [Concomitant]
     Active Substance: ACYCLOVIR
     Indication: PREMEDICATION
     Route: 048
     Dates: start: 20171218
  6. REACTINE [CETIRIZINE HYDROCHLORIDE] [Concomitant]
     Active Substance: CETIRIZINE HYDROCHLORIDE
     Indication: PREMEDICATION
     Route: 048
     Dates: start: 20171218, end: 20171222

REACTIONS (24)
  - Dysphonia [Recovered/Resolved]
  - Musculoskeletal chest pain [Recovered/Resolved]
  - Rash generalised [Recovered/Resolved]
  - Crystal urine present [Not Recovered/Not Resolved]
  - Erythema [Recovered/Resolved]
  - Bacterial test [Not Recovered/Not Resolved]
  - Malaise [Recovered/Resolved]
  - Urine analysis abnormal [Unknown]
  - Lymphocyte count decreased [Not Recovered/Not Resolved]
  - Fatigue [Recovered/Resolved]
  - Fall [Recovered/Resolved]
  - Hypoacusis [Recovered/Resolved]
  - Granulocyte count increased [Recovered/Resolved]
  - Lymphocyte percentage decreased [Not Recovered/Not Resolved]
  - Pruritus generalised [Recovered/Resolved]
  - White blood cell count decreased [Recovered/Resolved]
  - Haemolysis [Unknown]
  - Feeling abnormal [Recovered/Resolved]
  - Glucose urine present [Not Recovered/Not Resolved]
  - Headache [Recovered/Resolved]
  - Red blood cell count decreased [Recovered/Resolved]
  - Heart rate increased [Recovered/Resolved]
  - Muscular weakness [Recovered/Resolved]
  - Myalgia [Recovered/Resolved]

NARRATIVE: CASE EVENT DATE: 201712
